FAERS Safety Report 7985046-9 (Version None)
Quarter: 2011Q4

REPORT INFORMATION
  Report Type: 
  Country: None (occurrence: None)
  Receive Date: 20111216
  Receipt Date: 20111128
  Transmission Date: 20120403
  Serious: No
  Sender: FDA-Public Use
  Company Number: US-ALLERGAN-1115469US

PATIENT
  Age: 54 Year
  Sex: Female

DRUGS (2)
  1. CLEAR EYES                         /00419602/ [Concomitant]
     Indication: PRODUCT USED FOR UNKNOWN INDICATION
  2. LATISSE [Suspect]
     Indication: HYPOTRICHOSIS
     Dosage: 2 GTT, QHS
     Route: 061
     Dates: start: 20111001, end: 20111125

REACTIONS (1)
  - SKIN DISCOLOURATION [None]
